FAERS Safety Report 10083612 (Version 1)
Quarter: 2014Q2

REPORT INFORMATION
  Report Type: Spontaneous
  Country: US (occurrence: None)
  Receive Date: 20140416
  Receipt Date: 20140416
  Transmission Date: 20141212
  Serious: Yes (Hospitalization)
  Sender: FDA-Public Use
  Company Number: None

PATIENT
  Age: 66 Year
  Sex: Female
  Weight: 94.3 kg

DRUGS (16)
  1. CYMBALTA [Concomitant]
  2. HUMALOG INSULIN [Concomitant]
  3. LANTUS INSULINE [Concomitant]
  4. LANTUS INSULIN [Concomitant]
  5. METFORMIN [Concomitant]
  6. NORVASC [Concomitant]
  7. SYNTHROID [Concomitant]
  8. TOPROL XL [Concomitant]
  9. VOLTAREN [Concomitant]
  10. VYTORIN [Concomitant]
  11. ZOSYN [Concomitant]
  12. VANCOMYCIN [Concomitant]
  13. CYTARABINE [Suspect]
     Dosage: DOSE NOT CHANGED
     Dates: end: 20140326
  14. ACYCLOVIR [Concomitant]
  15. ARIMIDEX [Concomitant]
  16. CIPRO [Concomitant]

REACTIONS (8)
  - Pyrexia [None]
  - Dizziness [None]
  - Flushing [None]
  - Tachycardia [None]
  - Hypertension [None]
  - Hyperhidrosis [None]
  - Dehydration [None]
  - Sputum culture positive [None]
